FAERS Safety Report 11622115 (Version 1)
Quarter: 2015Q4

REPORT INFORMATION
  Report Type: Spontaneous
  Country: US (occurrence: US)
  Receive Date: 20151013
  Receipt Date: 20151013
  Transmission Date: 20160304
  Serious: No
  Sender: FDA-Public Use
  Company Number: US-JNJFOC-20150817231

PATIENT
  Sex: Female

DRUGS (4)
  1. SUDAFED 24 HOUR [Suspect]
     Active Substance: PSEUDOEPHEDRINE HYDROCHLORIDE
     Indication: NASOPHARYNGITIS
     Dosage: USED ONCE A YEAR DURING FLU/COLD SEASON IN THE WINTER MONTHS.
     Route: 048
  2. SUDAFED 12 HOUR [Suspect]
     Active Substance: PSEUDOEPHEDRINE HYDROCHLORIDE
     Indication: INFLUENZA
     Dosage: ONCE A YEAR DURING FLU/COLD SEASON IN THE WINTER MONTHS.
     Route: 048
  3. SUDAFED 24 HOUR [Suspect]
     Active Substance: PSEUDOEPHEDRINE HYDROCHLORIDE
     Indication: INFLUENZA
     Dosage: USED ONCE A YEAR DURING FLU/COLD SEASON IN THE WINTER MONTHS.
     Route: 048
  4. SUDAFED 12 HOUR [Suspect]
     Active Substance: PSEUDOEPHEDRINE HYDROCHLORIDE
     Indication: NASOPHARYNGITIS
     Dosage: ONCE A YEAR DURING FLU/COLD SEASON IN THE WINTER MONTHS.
     Route: 048

REACTIONS (2)
  - Product quality issue [Unknown]
  - Product use issue [Unknown]
